FAERS Safety Report 21705960 (Version 1)
Quarter: 2022Q4

REPORT INFORMATION
  Report Type: Spontaneous
  Country: US (occurrence: US)
  Receive Date: 20221209
  Receipt Date: 20221209
  Transmission Date: 20230113
  Serious: No
  Sender: FDA-Public Use
  Company Number: US-Calliditas-2022CAL00584

PATIENT
  Age: 46 Year
  Sex: Male

DRUGS (2)
  1. TARPEYO [Suspect]
     Active Substance: BUDESONIDE
     Indication: Haematuria
     Dosage: 16 MG (4MG CAPSULES) ONCE DAILY
     Route: 048
     Dates: start: 20220902
  2. TARPEYO [Suspect]
     Active Substance: BUDESONIDE
     Indication: Haematuria
     Dosage: 8 MG (4 MG CAPSULES) ONCE DAILY
     Route: 048
     Dates: start: 202209, end: 202209

REACTIONS (4)
  - Hypertension [Unknown]
  - Headache [Unknown]
  - Prescribed underdose [Unknown]
  - Proteinuria [Unknown]
